FAERS Safety Report 7175891-4 (Version None)
Quarter: 2010Q4

REPORT INFORMATION
  Report Type: 
  Country: None (occurrence: None)
  Receive Date: 20101220
  Receipt Date: 20100511
  Transmission Date: 20110411
  Serious: No
  Sender: FDA-Public Use
  Company Number: US-AMGEN-TCS403843

PATIENT

DRUGS (3)
  1. ENBREL [Suspect]
     Indication: PSORIASIS
     Dosage: 50 MG, 2 TIMES/WK
     Dates: start: 20031001, end: 20100405
  2. ENBREL [Suspect]
     Indication: PSORIATIC ARTHROPATHY
  3. ACITRETIN [Concomitant]
     Dosage: UNK UNK, UNK

REACTIONS (5)
  - BONE PAIN [None]
  - CHILLS [None]
  - MYALGIA [None]
  - PYREXIA [None]
  - TREMOR [None]
